FAERS Safety Report 9790412 (Version 1)
Quarter: 2013Q4

REPORT INFORMATION
  Report Type: Spontaneous
  Country: NO (occurrence: NO)
  Receive Date: 20131231
  Receipt Date: 20131231
  Transmission Date: 20140711
  Serious: Yes (Death, Other)
  Sender: FDA-Public Use
  Company Number: NO-BAXTER-2013BAX052714

PATIENT
  Age: 17 Year
  Sex: Female

DRUGS (11)
  1. HOLOXAN 2000 MG PULVER TIL INJEKSJONSV?SKE/INFUSJONSV?SKE, OPPL?SNING [Suspect]
     Indication: METASTASES TO LUNG
     Dosage: 77200 MG/M2, UNK
  2. HOLOXAN 2000 MG PULVER TIL INJEKSJONSV?SKE/INFUSJONSV?SKE, OPPL?SNING [Suspect]
     Indication: OSTEOSARCOMA
  3. ETOPOSIDE [Suspect]
     Indication: OSTEOSARCOMA
     Dosage: 2000 MG/M2
  4. ETOPOSIDE [Suspect]
     Indication: METASTASES TO LUNG
  5. CISPLATIN [Suspect]
     Indication: METASTASES TO LUNG
     Dosage: 580 MG/M2, UNK
  6. CISPLATIN [Suspect]
     Indication: OSTEOSARCOMA
  7. DOXORUBICIN [Suspect]
     Indication: OSTEOSARCOMA
     Dosage: 450 MG/M2, UNK
  8. DOXORUBICIN [Suspect]
     Indication: METASTASES TO LUNG
  9. METHOTREXATE [Suspect]
     Indication: METASTASES TO LUNG
     Dosage: 24000 MG/M2, UNK
  10. METHOTREXATE [Suspect]
     Indication: OSTEOSARCOMA
  11. SAMARIUM (153 SM) LEXIDRONAM [Concomitant]
     Indication: CANCER PAIN
     Dosage: 1 MCI/KG
     Route: 042

REACTIONS (5)
  - Pneumonitis [Fatal]
  - Metastases to lung [Unknown]
  - Febrile neutropenia [Unknown]
  - Thrombocytopenia [Unknown]
  - Rash [Unknown]
